FAERS Safety Report 9516087 (Version 1)
Quarter: 2013Q3

REPORT INFORMATION
  Report Type: Spontaneous
  Country: GB (occurrence: GB)
  Receive Date: 20130911
  Receipt Date: 20130911
  Transmission Date: 20140515
  Serious: Yes (Disabling)
  Sender: FDA-Public Use
  Company Number: GB-BAYER-2013-108654

PATIENT
  Age: 48 Year
  Sex: Female
  Weight: 98 kg

DRUGS (3)
  1. MIRENA [Suspect]
     Dosage: 20 MCG/24HR, CONT
     Route: 015
  2. BENDROFLUMETHIAZIDE [Concomitant]
  3. RAMIPRIL [Concomitant]

REACTIONS (2)
  - Device dislocation [Unknown]
  - Muscle injury [Unknown]
